FAERS Safety Report 8889892 (Version 2)
Quarter: 2013Q4

REPORT INFORMATION
  Report Type: Report from Study
  Country: US (occurrence: US)
  Receive Date: 20121107
  Receipt Date: 20131030
  Transmission Date: 20140711
  Serious: Yes (Other)
  Sender: FDA-Public Use
  Company Number: US-SANOFI-AVENTIS-200610805GDDC

PATIENT
  Age: 52 Year
  Sex: Female
  Weight: 82.7 kg

DRUGS (6)
  1. DOCETAXEL [Suspect]
     Indication: BREAST CANCER FEMALE
     Route: 042
     Dates: start: 20001122, end: 20001122
  2. DOCETAXEL [Suspect]
     Indication: BREAST CANCER FEMALE
     Route: 042
     Dates: start: 20010308, end: 20010308
  3. CYCLOPHOSPHAMIDE [Suspect]
     Indication: BREAST CANCER FEMALE
     Route: 042
     Dates: start: 20001122, end: 20001122
  4. CYCLOPHOSPHAMIDE [Suspect]
     Indication: BREAST CANCER FEMALE
     Route: 042
     Dates: start: 20010308, end: 20010308
  5. DOXORUBICIN [Suspect]
     Indication: BREAST CANCER FEMALE
     Route: 042
     Dates: start: 20001122, end: 20001122
  6. DOXORUBICIN [Suspect]
     Indication: BREAST CANCER FEMALE
     Route: 042
     Dates: start: 20010308, end: 20010308

REACTIONS (1)
  - Cardiomyopathy [Not Recovered/Not Resolved]
